FAERS Safety Report 22390549 (Version 3)
Quarter: 2023Q2

REPORT INFORMATION
  Report Type: Spontaneous
  Country: US (occurrence: US)
  Receive Date: 20230531
  Receipt Date: 20230619
  Transmission Date: 20230722
  Serious: Yes (Other)
  Sender: FDA-Public Use
  Company Number: US-BAUSCHBL-2023BNL004584

PATIENT
  Age: 68 Year
  Sex: Male

DRUGS (1)
  1. ALAWAY [Suspect]
     Active Substance: KETOTIFEN FUMARATE
     Indication: Product used for unknown indication
     Route: 047
     Dates: start: 202305, end: 20230524

REACTIONS (5)
  - Visual acuity reduced [Not Recovered/Not Resolved]
  - Instillation site irritation [Unknown]
  - Instillation site swelling [Not Recovered/Not Resolved]
  - Instillation site discharge [Unknown]
  - Suspected product contamination [Unknown]

NARRATIVE: CASE EVENT DATE: 20230501
